FAERS Safety Report 10978111 (Version 1)
Quarter: 2015Q2

REPORT INFORMATION
  Report Type: Spontaneous
  Country: PH (occurrence: PH)
  Receive Date: 20150402
  Receipt Date: 20150402
  Transmission Date: 20150821
  Serious: Yes (Death)
  Sender: FDA-Public Use
  Company Number: PHHY2011PH59096

PATIENT
  Age: 94 Year
  Sex: Male
  Weight: 43 kg

DRUGS (2)
  1. ENALAPRIL [Concomitant]
     Active Substance: ENALAPRIL
     Indication: HYPERTENSION
     Dosage: 5 MG, QD
     Route: 048
     Dates: start: 2009
  2. EXELON PATCH [Suspect]
     Active Substance: RIVASTIGMINE
     Indication: DEMENTIA ALZHEIMER^S TYPE
     Dosage: 4.6 MG (5 CM2, 1 PATCH DAILY)
     Route: 062
     Dates: start: 20110413

REACTIONS (7)
  - Cardio-respiratory arrest [Fatal]
  - Blood pressure decreased [Unknown]
  - Dyspnoea [Fatal]
  - Pneumonia aspiration [Fatal]
  - Infection [Fatal]
  - Septic shock [Fatal]
  - Cough [Fatal]

NARRATIVE: CASE EVENT DATE: 20110425
